FAERS Safety Report 13652598 (Version 1)
Quarter: 2017Q2

REPORT INFORMATION
  Report Type: Spontaneous
  Country: US (occurrence: US)
  Receive Date: 20170614
  Receipt Date: 20170614
  Transmission Date: 20170830
  Serious: Yes (Other)
  Sender: FDA-Public Use
  Company Number: US-ROCHE-1123482

PATIENT
  Age: 58 Year
  Sex: Female

DRUGS (6)
  1. GEMZAR [Concomitant]
     Active Substance: GEMCITABINE HYDROCHLORIDE
     Route: 065
  2. XELODA [Suspect]
     Active Substance: CAPECITABINE
     Indication: PRODUCT USED FOR UNKNOWN INDICATION
     Route: 065
     Dates: start: 20050509
  3. CISPLATINUM [Concomitant]
     Active Substance: CISPLATIN
     Route: 065
  4. TARCEVA [Concomitant]
     Active Substance: ERLOTINIB HYDROCHLORIDE
     Route: 065
     Dates: start: 20050826
  5. INSULIN [Concomitant]
     Active Substance: INSULIN NOS
     Route: 065
  6. AVASTIN [Concomitant]
     Active Substance: BEVACIZUMAB
     Route: 065
     Dates: start: 20050909

REACTIONS (3)
  - Platelet count decreased [Unknown]
  - Cytopenia [Unknown]
  - Diarrhoea [Unknown]

NARRATIVE: CASE EVENT DATE: 20050606
